FAERS Safety Report 24955338 (Version 1)
Quarter: 2025Q1

REPORT INFORMATION
  Report Type: Report from Study
  Country: US (occurrence: US)
  Receive Date: 20250211
  Receipt Date: 20250211
  Transmission Date: 20250409
  Serious: Yes (Other)
  Sender: ABBVIE
  Company Number: US-ABBVIE-6125433

PATIENT
  Age: 79 Year
  Sex: Female

DRUGS (1)
  1. VENETOCLAX [Suspect]
     Active Substance: VENETOCLAX
     Indication: Acute myeloid leukaemia
     Dosage: FORM STRENGTH: 100MG?TAKE 4 TABLET(S) BY MOUTH (400MG) EVERY DAY FOR 14 DAYS THEN 14 DAYS OFF
     Route: 048

REACTIONS (2)
  - Leukaemia [Unknown]
  - Dementia [Unknown]
